FAERS Safety Report 15390232 (Version 2)
Quarter: 2018Q4

REPORT INFORMATION
  Report Type: Report from Study
  Country: MX (occurrence: MX)
  Receive Date: 20180917
  Receipt Date: 20181001
  Transmission Date: 20190204
  Serious: Yes (Other)
  Sender: FDA-Public Use
  Company Number: PHHY2018MX095810

PATIENT
  Age: 75 Year
  Sex: Female

DRUGS (3)
  1. CO-DIOVAN [Suspect]
     Active Substance: HYDROCHLOROTHIAZIDE\VALSARTAN
     Indication: HYPERTENSION
     Dosage: 1 DF, Q12H , (HYDRCHLOROTHIAZIDE 12.5 MG,VALSARTAN 160 MG)
     Route: 048
     Dates: start: 20120101
  2. JANUMET [Concomitant]
     Active Substance: METFORMIN HYDROCHLORIDE\SITAGLIPTIN PHOSPHATE
     Indication: DIABETES MELLITUS
     Dosage: 2 DF, QD
     Route: 048
     Dates: start: 20180101
  3. DAFLON [Concomitant]
     Indication: VARICOSE VEIN
     Dosage: 2 DF, QD
     Route: 048

REACTIONS (5)
  - Amnesia [Not Recovered/Not Resolved]
  - Inappropriate schedule of product administration [Unknown]
  - Osteoporosis [Not Recovered/Not Resolved]
  - Visual impairment [Not Recovered/Not Resolved]
  - Product prescribing error [Unknown]

NARRATIVE: CASE EVENT DATE: 20170101
